FAERS Safety Report 21915683 (Version 1)
Quarter: 2023Q1

REPORT INFORMATION
  Report Type: Spontaneous
  Country: US (occurrence: None)
  Receive Date: 20230125
  Receipt Date: 20230125
  Transmission Date: 20230418
  Serious: Yes (Other)
  Sender: FDA-Public Use
  Company Number: None

PATIENT
  Age: 77 Year
  Sex: Female
  Weight: 74.25 kg

DRUGS (17)
  1. OMEPRAZOLE [Suspect]
     Active Substance: OMEPRAZOLE
     Indication: Gastrooesophageal reflux disease
     Dosage: OTHER QUANTITY : 2 CAPSULE(S);?FREQUENCY : TWICE A DAY;?
     Route: 048
  2. METFORMIN [Concomitant]
     Active Substance: METFORMIN HYDROCHLORIDE
  3. GLIPIZIDE [Concomitant]
     Active Substance: GLIPIZIDE
  4. VITAMINS [Concomitant]
     Active Substance: VITAMINS
  5. VITAMIN D3 [Concomitant]
     Active Substance: CHOLECALCIFEROL
  6. OMEGA 3 [Concomitant]
  7. COENZYME Q10 [Concomitant]
     Active Substance: DIETARY SUPPLEMENT\UBIDECARENONE
  8. DIETARY SUPPLEMENT\RESVERATROL [Concomitant]
     Active Substance: DIETARY SUPPLEMENT\RESVERATROL
  9. TIMED RELASE ALPHA LIPOIC ACID [Concomitant]
  10. BERBERINE [Concomitant]
     Active Substance: BERBERINE
  11. GLUCOSE ESSENTIALS [Concomitant]
  12. MAGNESIUM [Concomitant]
     Active Substance: MAGNESIUM
  13. ZINC [Concomitant]
     Active Substance: ZINC
  14. NAC [Concomitant]
  15. HERBALS\TURMERIC [Concomitant]
     Active Substance: HERBALS\TURMERIC
  16. LIVER HEALTH PRODUCT [Concomitant]
  17. BLOOD SUGAR SUPPORT [Concomitant]

REACTIONS (7)
  - Withdrawal syndrome [None]
  - Malaise [None]
  - Discomfort [None]
  - Vomiting projectile [None]
  - Therapy cessation [None]
  - Nausea [None]
  - Therapy change [None]
